FAERS Safety Report 17261194 (Version 3)
Quarter: 2020Q1

REPORT INFORMATION
  Report Type: Spontaneous
  Country: JP (occurrence: JP)
  Receive Date: 20200113
  Receipt Date: 20200128
  Transmission Date: 20200409
  Serious: Yes (Death, Hospitalization, Other)
  Sender: FDA-Public Use
  Company Number: JP-009507513-2001JPN000475J

PATIENT
  Sex: Male

DRUGS (1)
  1. KEYTRUDA [Suspect]
     Active Substance: PEMBROLIZUMAB
     Indication: NON-SMALL CELL LUNG CANCER
     Dosage: 200 MILLIGRAM, Q3W
     Route: 041
     Dates: start: 201906, end: 201911

REACTIONS (4)
  - Pseudomembranous colitis [Recovering/Resolving]
  - Malignant neoplasm progression [Fatal]
  - Nutritional condition abnormal [Fatal]
  - Rectal ulcer haemorrhage [Fatal]

NARRATIVE: CASE EVENT DATE: 201911
